FAERS Safety Report 9165814 (Version 1)
Quarter: 2013Q1

REPORT INFORMATION
  Report Type: Spontaneous
  Country: IT (occurrence: None)
  Receive Date: 20130304
  Receipt Date: 20130304
  Transmission Date: 20140127
  Serious: Yes (Hospitalization)
  Sender: FDA-Public Use
  Company Number: GER/ITL/13/0028137

PATIENT
  Age: 49 Year
  Sex: Male

DRUGS (3)
  1. OLANZAPINE (OLANZAPINE) [Suspect]
     Indication: PRODUCT USED FOR UNKNOWN INDICATION
     Route: 048
     Dates: start: 20130206, end: 20130206
  2. LORAZEPAM (LORAZEPAM) [Suspect]
     Indication: PRODUCT USED FOR UNKNOWN INDICATION
     Route: 048
     Dates: start: 20130206, end: 20130206
  3. VALPROATE SODIUM [Suspect]
     Indication: PRODUCT USED FOR UNKNOWN INDICATION
     Route: 048
     Dates: start: 20130206, end: 20130206

REACTIONS (4)
  - Cardiac enzymes increased [None]
  - Electrocardiogram abnormal [None]
  - Somnolence [None]
  - Intentional self-injury [None]
